FAERS Safety Report 5744176-2 (Version None)
Quarter: 2008Q2

REPORT INFORMATION
  Report Type: 
  Country: None (occurrence: None)
  Receive Date: 20080516
  Receipt Date: 20080501
  Transmission Date: 20081010
  Serious: Yes (Hospitalization)
  Sender: FDA-Public Use
  Company Number: 2008AL003173

PATIENT
  Sex: Female

DRUGS (5)
  1. DIGOXIN [Suspect]
     Indication: CARDIAC DISORDER
     Dosage: 0.25MG DAILY PO; MORE THAN 15 YEARS
     Route: 048
  2. LANOXIN [Concomitant]
  3. SIMVASTATIN [Concomitant]
  4. ASPIRIN [Concomitant]
  5. ATENOLOL [Concomitant]

REACTIONS (1)
  - THERAPEUTIC AGENT TOXICITY [None]
